FAERS Safety Report 13379992 (Version 1)
Quarter: 2017Q1

REPORT INFORMATION
  Report Type: Spontaneous
  Country: US (occurrence: US)
  Receive Date: 20170328
  Receipt Date: 20170328
  Transmission Date: 20170429
  Serious: No
  Sender: FDA-Public Use
  Company Number: US-ACTELION-A-NJ2017-151519

PATIENT
  Age: 64 Year
  Sex: Female

DRUGS (11)
  1. OPSUMIT [Suspect]
     Active Substance: MACITENTAN
     Indication: PULMONARY ARTERIAL HYPERTENSION
     Dosage: 10 MG, QD
     Route: 048
  2. METOPROLOL. [Concomitant]
     Active Substance: METOPROLOL
  3. METFORMIN [Concomitant]
     Active Substance: METFORMIN HYDROCHLORIDE
     Indication: ESSENTIAL HYPERTENSION
  4. GLYBURIDE. [Concomitant]
     Active Substance: GLYBURIDE
  5. PROTONIX [Concomitant]
     Active Substance: PANTOPRAZOLE SODIUM
  6. DILTIAZEM CD [Concomitant]
     Active Substance: DILTIAZEM
  7. LISINOPRIL AND HYDROCHLOROTHIAZIDE [Concomitant]
     Active Substance: HYDROCHLOROTHIAZIDE\LISINOPRIL
  8. TOUJEO [Concomitant]
     Active Substance: INSULIN GLARGINE
  9. ADEMPAS [Concomitant]
     Active Substance: RIOCIGUAT
  10. ARAVA [Concomitant]
     Active Substance: LEFLUNOMIDE
  11. ELIQUIS [Concomitant]
     Active Substance: APIXABAN

REACTIONS (4)
  - Concomitant disease aggravated [Recovering/Resolving]
  - Oxygen consumption increased [Recovering/Resolving]
  - Seasonal allergy [Recovering/Resolving]
  - Nasal congestion [Recovering/Resolving]

NARRATIVE: CASE EVENT DATE: 20170306
